FAERS Safety Report 6860698-5 (Version None)
Quarter: 2010Q3

REPORT INFORMATION
  Report Type: 
  Country: None (occurrence: None)
  Receive Date: 20100720
  Receipt Date: 20100706
  Transmission Date: 20110219
  Serious: Yes (Hospitalization)
  Sender: FDA-Public Use
  Company Number: SI-MEDIMMUNE-MEDI-0011172

PATIENT
  Sex: Male
  Weight: 1.34 kg

DRUGS (6)
  1. SYNAGIS [Suspect]
     Route: 030
     Dates: start: 20100209, end: 20100302
  2. SYNAGIS [Suspect]
     Route: 030
     Dates: start: 20100402
  3. MILUPA [Concomitant]
     Dates: start: 20100201
  4. CAFFEINE [Concomitant]
     Dates: start: 20100201
  5. EPOETIN ALFA [Concomitant]
     Dates: start: 20100201
  6. IRON [Concomitant]
     Dates: start: 20100201

REACTIONS (8)
  - ANAEMIA [None]
  - CEREBRAL CYST [None]
  - CEREBRAL VENOUS THROMBOSIS [None]
  - CONVULSION [None]
  - IRRITABILITY [None]
  - METABOLIC ACIDOSIS [None]
  - MUSCLE SPASMS [None]
  - TACHYPNOEA [None]
